FAERS Safety Report 7658748-1 (Version None)
Quarter: 2011Q3

REPORT INFORMATION
  Report Type: 
  Country: None (occurrence: None)
  Receive Date: 20110805
  Receipt Date: 20110801
  Transmission Date: 20111222
  Serious: Yes (Death, Other)
  Sender: FDA-Public Use
  Company Number: US-PFIZER INC-2011175068

PATIENT
  Sex: Male
  Weight: 84 kg

DRUGS (6)
  1. ATIVAN [Concomitant]
     Dosage: 1 MG, 2X/DAY
  2. CELEXA [Concomitant]
     Dosage: 40 MG, 1X/DAY
  3. AMBIEN [Concomitant]
     Dosage: UNK
  4. NEURONTIN [Suspect]
     Indication: PAIN
     Dosage: 800 MG, 3X/DAY
     Route: 048
     Dates: start: 20110415
  5. NEURONTIN [Suspect]
     Indication: BACK DISORDER
  6. NEURONTIN [Suspect]
     Indication: NERVOUS SYSTEM DISORDER

REACTIONS (1)
  - COMPLETED SUICIDE [None]
